FAERS Safety Report 18901833 (Version 2)
Quarter: 2021Q1

REPORT INFORMATION
  Report Type: Spontaneous
  Country: CN (occurrence: CN)
  Receive Date: 20210216
  Receipt Date: 20210218
  Transmission Date: 20210420
  Serious: Yes (Hospitalization)
  Sender: FDA-Public Use
  Company Number: CN-PFIZER INC-2021154312

PATIENT
  Age: 71 Year
  Sex: Female
  Weight: 60 kg

DRUGS (2)
  1. LIPITOR [Suspect]
     Active Substance: ATORVASTATIN CALCIUM
     Indication: CARDIO-RESPIRATORY ARREST
     Dosage: 20.000 MG, 1X/DAY
     Route: 048
     Dates: start: 20210117, end: 20210206
  2. SPIRONOLACTONE. [Concomitant]
     Active Substance: SPIRONOLACTONE
     Indication: CARDIO-RESPIRATORY ARREST
     Dosage: 20.000 MG, 1X/DAY
     Route: 048
     Dates: start: 20210117, end: 20210206

REACTIONS (3)
  - Rhabdomyolysis [Unknown]
  - Hyperkalaemia [Unknown]
  - Renal impairment [Unknown]

NARRATIVE: CASE EVENT DATE: 20210127
